FAERS Safety Report 13215239 (Version 1)
Quarter: 2017Q1

REPORT INFORMATION
  Report Type: Spontaneous
  Country: US (occurrence: US)
  Receive Date: 20170210
  Receipt Date: 20170210
  Transmission Date: 20170428
  Serious: Yes (Other)
  Sender: FDA-Public Use
  Company Number: US-GILEAD-2017-0257218

PATIENT
  Age: 53 Year
  Sex: Female
  Weight: 123.4 kg

DRUGS (3)
  1. RIBAVIRIN. [Suspect]
     Active Substance: RIBAVIRIN
     Indication: PRODUCT USED FOR UNKNOWN INDICATION
     Dosage: 200 MG, UNK
     Route: 065
  2. VIEKIRA PAK [Suspect]
     Active Substance: DASABUVIR\OMBITASVIR\PARITAPREVIR\RITONAVIR
     Indication: PRODUCT USED FOR UNKNOWN INDICATION
     Route: 065
  3. HARVONI [Suspect]
     Active Substance: LEDIPASVIR\SOFOSBUVIR
     Indication: CHRONIC HEPATITIS C
     Route: 065

REACTIONS (20)
  - Cardio-respiratory arrest [Unknown]
  - Lymphoedema [Unknown]
  - Anaemia [Unknown]
  - Thrombocytopenia [Unknown]
  - Sepsis [Unknown]
  - Body mass index increased [Unknown]
  - Adverse drug reaction [Unknown]
  - Hyponatraemia [Unknown]
  - Magnesium metabolism disorder [Unknown]
  - Essential hypertension [Unknown]
  - Acute respiratory failure [Unknown]
  - Cardiomyopathy [Unknown]
  - Atrial fibrillation [Unknown]
  - Blood hyposmosis [Unknown]
  - Electrolyte imbalance [Unknown]
  - Obesity [Unknown]
  - Disseminated intravascular coagulation [Unknown]
  - Septic shock [Unknown]
  - Hypothyroidism [Unknown]
  - Hepatic cirrhosis [Unknown]
